FAERS Safety Report 19084796 (Version 1)
Quarter: 2021Q2

REPORT INFORMATION
  Report Type: Spontaneous
  Country: US (occurrence: US)
  Receive Date: 20210401
  Receipt Date: 20210401
  Transmission Date: 20210717
  Serious: No
  Sender: FDA-Public Use
  Company Number: US-BAYER-2021-115147

PATIENT
  Age: 67 Year
  Sex: Male

DRUGS (2)
  1. ALEVE [Suspect]
     Active Substance: NAPROXEN SODIUM
  2. CELEBREX [Suspect]
     Active Substance: CELECOXIB

REACTIONS (1)
  - Hypersensitivity [Unknown]
